FAERS Safety Report 6766784-2 (Version None)
Quarter: 2010Q2

REPORT INFORMATION
  Report Type: 
  Country: None (occurrence: None)
  Receive Date: 20100611
  Receipt Date: 20100601
  Transmission Date: 20101027
  Serious: Yes (Hospitalization, Disabling)
  Sender: FDA-Public Use
  Company Number: US-ELI_LILLY_AND_COMPANY-US200911005493

PATIENT
  Sex: Male
  Weight: 96.145 kg

DRUGS (23)
  1. ZYPREXA [Suspect]
     Dosage: 1 D/F, UNK
  2. ZYPREXA [Suspect]
     Dosage: 10 MG, EACH EVENING
  3. ZYPREXA [Suspect]
     Dosage: 5 MG, EACH EVENING
  4. ZYPREXA [Suspect]
     Dosage: 25 MG, EACH EVENING
  5. ZYPREXA [Suspect]
     Dosage: 15 MG, EACH EVENING
  6. ZYPREXA [Suspect]
     Dosage: 10 MG, 2/D
     Dates: end: 20080603
  7. ZYPREXA ZYDIS [Suspect]
     Dosage: 15 MG, EACH EVENING
  8. ZYPREXA ZYDIS [Suspect]
     Dosage: 20 MG, EACH EVENING
     Dates: end: 20040101
  9. ARIPIPRAZOLE [Concomitant]
     Dates: start: 20080101
  10. SERTRALINE HCL [Concomitant]
     Dosage: 200 MG, EACH EVENING
     Dates: start: 20000101
  11. SERTRALINE HCL [Concomitant]
     Dosage: 75 MG, DAILY (1/D)
  12. NAVANE [Concomitant]
     Dosage: 10 MG, 2/D
     Dates: start: 20080603
  13. ARTANE [Concomitant]
     Dosage: 2 MG, 2/D
     Dates: start: 20080603
  14. KLONOPIN [Concomitant]
     Dosage: 0.5 MG, EACH MORNING
     Dates: start: 20080603
  15. KLONOPIN [Concomitant]
     Dosage: 2 MG, EACH EVENING
     Dates: start: 20080603
  16. VISTARIL [Concomitant]
     Dosage: 25 MG, 2/D
     Dates: start: 20100603
  17. LAMICTAL [Concomitant]
     Dosage: 75 MG, EACH EVENING
     Dates: start: 20100603
  18. HALDOL [Concomitant]
     Dosage: 25 MG, 2/D
  19. DEPAKOTE [Concomitant]
     Dosage: 500 MG, DAILY (1/D)
     Dates: start: 20080612
  20. DEPAKOTE [Concomitant]
     Dosage: 750 MG, EACH EVENING
     Dates: start: 20080612
  21. DEPAKOTE [Concomitant]
     Dosage: 1 MG, EACH EVENING
  22. ATIVAN [Concomitant]
     Dosage: 2 MG, UNK
     Route: 048
     Dates: start: 20080613
  23. CELEXA [Concomitant]
     Indication: DEPRESSION
     Dosage: 10 MG, DAILY (1/D)
     Route: 048
     Dates: start: 20080714

REACTIONS (11)
  - BLOOD CHOLESTEROL INCREASED [None]
  - BLOOD TRIGLYCERIDES INCREASED [None]
  - CONDITION AGGRAVATED [None]
  - EOSINOPHIL COUNT INCREASED [None]
  - GLYCOSYLATED HAEMOGLOBIN INCREASED [None]
  - MONOCYTE COUNT DECREASED [None]
  - OVERDOSE [None]
  - PSYCHOTIC DISORDER [None]
  - REFUSAL OF TREATMENT BY PATIENT [None]
  - TYPE 2 DIABETES MELLITUS [None]
  - WEIGHT INCREASED [None]
